FAERS Safety Report 23858043 (Version 1)
Quarter: 2024Q2

REPORT INFORMATION
  Report Type: Spontaneous
  Country: US (occurrence: US)
  Receive Date: 20240515
  Receipt Date: 20240515
  Transmission Date: 20240716
  Serious: No
  Sender: FDA-Public Use
  Company Number: US-BAYER-2024A069923

PATIENT
  Age: 82 Year
  Sex: Female

DRUGS (2)
  1. CLARITIN LIQUI-GELS [Suspect]
     Active Substance: LORATADINE
     Indication: Hypersensitivity
     Dosage: 1 PILL LAST NIGHT AND 1 PILL THIS MORNING
     Route: 048
     Dates: start: 20240509, end: 20240510
  2. CLARITIN LIQUI-GELS [Suspect]
     Active Substance: LORATADINE
     Indication: Nasopharyngitis

REACTIONS (2)
  - Inappropriate schedule of product administration [None]
  - Expired product administered [None]

NARRATIVE: CASE EVENT DATE: 20240509
